FAERS Safety Report 9509672 (Version 1)
Quarter: 2013Q3

REPORT INFORMATION
  Report Type: Spontaneous
  Country: US (occurrence: US)
  Receive Date: 20130909
  Receipt Date: 20130909
  Transmission Date: 20140515
  Serious: Yes (Other)
  Sender: FDA-Public Use
  Company Number: US-BRISTOL-MYERS SQUIBB COMPANY-17191461

PATIENT
  Age: 28 Year
  Sex: Male

DRUGS (2)
  1. ABILIFY TABS 20 MG [Suspect]
     Dates: start: 2002
  2. LITHIUM [Suspect]
     Dosage: AT NIGHT

REACTIONS (2)
  - Diabetes mellitus [Unknown]
  - Fatigue [Unknown]
